FAERS Safety Report 10880974 (Version 1)
Quarter: 2015Q1

REPORT INFORMATION
  Report Type: Spontaneous
  Country: US (occurrence: None)
  Receive Date: 20150225
  Receipt Date: 20150225
  Transmission Date: 20150721
  Serious: Yes (Hospitalization)
  Sender: FDA-Public Use
  Company Number: None

PATIENT
  Age: 40 Year
  Sex: Female
  Weight: 138.6 kg

DRUGS (29)
  1. EMLA TOPICAL CREAM [Concomitant]
  2. GABAPENTIN. [Concomitant]
     Active Substance: GABAPENTIN
  3. OXYCODONE [Concomitant]
     Active Substance: OXYCODONE
  4. VITAMIN D [Concomitant]
     Active Substance: CHOLECALCIFEROL
  5. ZOLTRON [Concomitant]
  6. DIAZEPAM. [Concomitant]
     Active Substance: DIAZEPAM
  7. PROMETHAZINE [Concomitant]
     Active Substance: PROMETHAZINE\PROMETHAZINE HYDROCHLORIDE
  8. ZONISAMIDE. [Concomitant]
     Active Substance: ZONISAMIDE
  9. SOLU-MEDROL [Suspect]
     Active Substance: METHYLPREDNISOLONE SODIUM SUCCINATE
     Dosage: DAYS 1 TO 3 10MG/ML IV
     Route: 042
     Dates: start: 20141209, end: 20141211
  10. BUSPIRONE [Concomitant]
     Active Substance: BUSPIRONE HYDROCHLORIDE
  11. CYMBALTA DELAYED RELEASE [Concomitant]
  12. MULTIVITAMIN [Concomitant]
     Active Substance: VITAMINS
  13. ALEMTUZUMAB [Suspect]
     Active Substance: ALEMTUZUMAB
     Indication: MULTIPLE SCLEROSIS
     Dosage: DAYS 1 TO 5 10MG/ML IV
     Route: 042
     Dates: start: 20140127, end: 20140131
  14. HYDROXYZINE HCL [Concomitant]
     Active Substance: HYDROXYZINE HYDROCHLORIDE
  15. MELATONIN [Concomitant]
     Active Substance: MELATONIN
  16. METOCLOPRAMIDE. [Concomitant]
     Active Substance: METOCLOPRAMIDE
  17. NYSTATIN. [Concomitant]
     Active Substance: NYSTATIN
  18. VITAMIN B COMPLEX # 3-FOLIC ACID-VIT C-BIOTIN [Concomitant]
  19. ALEMTUZUMAB [Concomitant]
     Active Substance: ALEMTUZUMAB
  20. SUMATRIPTAN. [Concomitant]
     Active Substance: SUMATRIPTAN
  21. CATHETER 14 FR-6^ [Concomitant]
  22. LUNESTA [Concomitant]
     Active Substance: ESZOPICLONE
  23. SINGULAIR [Concomitant]
     Active Substance: MONTELUKAST SODIUM
  24. FLUCONAZOLE. [Concomitant]
     Active Substance: FLUCONAZOLE
  25. MAGNESIUM [Concomitant]
     Active Substance: MAGNESIUM
  26. LASIX [Concomitant]
     Active Substance: FUROSEMIDE
  27. METHYLPHENIDATE [Concomitant]
     Active Substance: METHYLPHENIDATE
  28. ACETAMINOPHEN. [Concomitant]
     Active Substance: ACETAMINOPHEN
  29. VALTREX [Concomitant]
     Active Substance: VALACYCLOVIR HYDROCHLORIDE

REACTIONS (3)
  - Accidental overdose [None]
  - Anxiety [None]
  - Depression [None]

NARRATIVE: CASE EVENT DATE: 20150211
